FAERS Safety Report 8549064-4 (Version None)
Quarter: 2012Q3

REPORT INFORMATION
  Report Type: 
  Country: None (occurrence: None)
  Receive Date: 20120730
  Receipt Date: 20120719
  Transmission Date: 20120928
  Serious: Yes (Hospitalization)
  Sender: FDA-Public Use
  Company Number: US-VERTEX PHARMACEUTICALS INC.-AE-2012-010854

PATIENT
  Sex: Male

DRUGS (4)
  1. INCIVEK [Suspect]
     Indication: HEPATITIS C
     Dates: start: 20111204, end: 20120226
  2. RIBAVIRIN [Concomitant]
     Indication: HEPATITIS C
     Dates: start: 20111204, end: 20120404
  3. PEGASYS [Concomitant]
     Indication: HEPATITIS C
     Dates: start: 20111204, end: 20120404
  4. PREDNISONE [Concomitant]

REACTIONS (1)
  - RASH GENERALISED [None]
